FAERS Safety Report 22380487 (Version 2)
Quarter: 2023Q2

REPORT INFORMATION
  Report Type: Report from Study
  Country: CA (occurrence: CA)
  Receive Date: 20230529
  Receipt Date: 20230620
  Transmission Date: 20230721
  Serious: Yes (Death, Hospitalization)
  Sender: FDA-Public Use
  Company Number: CA-HLS-202301285

PATIENT
  Age: 70 Year
  Sex: Male
  Weight: 55 kg

DRUGS (1)
  1. CLOZARIL [Suspect]
     Active Substance: CLOZAPINE
     Indication: Schizophrenia
     Dosage: 12.5 MG TID AND 100 MG HS
     Route: 048
     Dates: start: 20190913

REACTIONS (1)
  - Death [Fatal]
